FAERS Safety Report 5064009-X (Version None)
Quarter: 2006Q3

REPORT INFORMATION
  Report Type: 
  Country: None (occurrence: None)
  Receive Date: 20060703
  Receipt Date: 20060523
  Transmission Date: 20061208
  Serious: Yes (Hospitalization)
  Sender: FDA-Public Use
  Company Number: SU-2006-004968

PATIENT
  Sex: 0

DRUGS (2)
  1. BENICAR [Suspect]
     Indication: DRUG USE FOR UNKNOWN INDICATION
  2. BENICAR HCT [Suspect]
     Indication: DRUG USE FOR UNKNOWN INDICATION

REACTIONS (1)
  - ANGIONEUROTIC OEDEMA [None]
